FAERS Safety Report 4635251-4 (Version None)
Quarter: 2005Q2

REPORT INFORMATION
  Report Type: 
  Country: None (occurrence: None)
  Receive Date: 20050411
  Receipt Date: 20050405
  Transmission Date: 20051028
  Serious: Yes (Life-Threatening, Hospitalization)
  Sender: FDA-Public Use
  Company Number: 200510582BWH

PATIENT
  Age: 43 Year
  Sex: Male

DRUGS (1)
  1. AVELOX [Suspect]
     Indication: BRONCHITIS
     Dosage: 400 MG, ONCE, ORAL
     Route: 048
     Dates: start: 20050302

REACTIONS (6)
  - ANAPHYLACTIC REACTION [None]
  - DROOLING [None]
  - DYSPHAGIA [None]
  - FEELING ABNORMAL [None]
  - FOAMING AT MOUTH [None]
  - SPEECH DISORDER [None]
